FAERS Safety Report 7970362-7 (Version None)
Quarter: 2011Q4

REPORT INFORMATION
  Report Type: 
  Country: None (occurrence: None)
  Receive Date: 20111212
  Receipt Date: 20111201
  Transmission Date: 20120403
  Serious: Yes (Life-Threatening)
  Sender: FDA-Public Use
  Company Number: SI-SANOFI-AVENTIS-2011SA078821

PATIENT
  Sex: Female

DRUGS (1)
  1. MULTAQ [Suspect]
     Route: 065

REACTIONS (1)
  - TACHYCARDIA [None]
